FAERS Safety Report 18501258 (Version 3)
Quarter: 2020Q4

REPORT INFORMATION
  Report Type: Spontaneous
  Country: HK (occurrence: HK)
  Receive Date: 20201113
  Receipt Date: 20201123
  Transmission Date: 20210114
  Serious: Yes (Life-Threatening, Other)
  Sender: FDA-Public Use
  Company Number: HK-PFIZER INC-2020444961

PATIENT
  Age: 44 Year
  Sex: Female

DRUGS (5)
  1. PANTOPRAZOLE [Suspect]
     Active Substance: PANTOPRAZOLE
     Indication: ANAPHYLACTIC REACTION
     Dosage: UNK
     Route: 065
  2. ESOMEPRAZOLE MAGNESIUM. [Suspect]
     Active Substance: ESOMEPRAZOLE MAGNESIUM
     Indication: INFLUENZA LIKE ILLNESS
  3. PARACETAMOL [Concomitant]
     Active Substance: ACETAMINOPHEN
     Indication: INFLUENZA LIKE ILLNESS
  4. ESOMEPRAZOLE MAGNESIUM. [Suspect]
     Active Substance: ESOMEPRAZOLE MAGNESIUM
     Indication: ABDOMINAL DISCOMFORT
     Dosage: 20 MG, 1X/DAY(20 MILLIGRAM, QD)
     Route: 048
  5. PARACETAMOL [Concomitant]
     Active Substance: ACETAMINOPHEN
     Indication: ABDOMINAL DISCOMFORT
     Dosage: 500 MG, 1X/DAY(500 MILLIGRAM, QD)
     Route: 048

REACTIONS (6)
  - Loss of consciousness [Unknown]
  - Product use in unapproved indication [Unknown]
  - Type I hypersensitivity [Unknown]
  - Anaphylactic reaction [Unknown]
  - Off label use [Unknown]
  - Fall [Unknown]
